FAERS Safety Report 8621844-6 (Version None)
Quarter: 2012Q3

REPORT INFORMATION
  Report Type: 
  Country: None (occurrence: None)
  Receive Date: 20120822
  Receipt Date: 20120822
  Transmission Date: 20120928
  Serious: Yes (Hospitalization)
  Sender: FDA-Public Use
  Company Number: None

PATIENT
  Sex: Male
  Weight: 183.6 kg

DRUGS (2)
  1. AZATHIOPRINE SODIUM [Suspect]
     Indication: PANCYTOPENIA
     Dosage: 50 MG QID PO
     Route: 048
     Dates: start: 20100721, end: 20120810
  2. AZATHIOPRINE SODIUM [Suspect]
     Indication: NEUTROPENIA
     Dosage: 50 MG QID PO
     Route: 048
     Dates: start: 20100721, end: 20120810

REACTIONS (4)
  - PANCYTOPENIA [None]
  - MYALGIA [None]
  - ASTHENIA [None]
  - LETHARGY [None]
